FAERS Safety Report 5674573-5 (Version None)
Quarter: 2008Q1

REPORT INFORMATION
  Report Type: 
  Country: None (occurrence: None)
  Receive Date: 20080319
  Receipt Date: 20080319
  Transmission Date: 20080703
  Serious: Yes (Disabling)
  Sender: FDA-Public Use
  Company Number: None

PATIENT
  Age: 58 Year
  Sex: Female
  Weight: 72.5755 kg

DRUGS (1)
  1. LEVAQUIN [Suspect]
     Indication: INFECTION
     Dosage: 2XDAY PO
     Route: 048
     Dates: start: 20061207, end: 20061216

REACTIONS (6)
  - ANAEMIA [None]
  - CARTILAGE INJURY [None]
  - MUSCULAR WEAKNESS [None]
  - ROTATOR CUFF SYNDROME [None]
  - TENDON INJURY [None]
  - VITREOUS FLOATERS [None]
